FAERS Safety Report 19493221 (Version 6)
Quarter: 2021Q4

REPORT INFORMATION
  Report Type: Spontaneous
  Country: US (occurrence: US)
  Receive Date: 20210705
  Receipt Date: 20211227
  Transmission Date: 20220303
  Serious: Yes (Other)
  Sender: FDA-Public Use
  Company Number: US-PFIZER INC-2021749647

PATIENT
  Age: 64 Year
  Sex: Female

DRUGS (2)
  1. NORPACE CR [Suspect]
     Active Substance: DISOPYRAMIDE PHOSPHATE
     Indication: Hypertrophic cardiomyopathy
     Dosage: 150 MG, 2X/DAY
     Route: 048
  2. NORPACE CR [Suspect]
     Active Substance: DISOPYRAMIDE PHOSPHATE
     Indication: Prophylaxis

REACTIONS (3)
  - Arrhythmia [Unknown]
  - Atrial fibrillation [Unknown]
  - Off label use [Unknown]
